FAERS Safety Report 9447433 (Version 1)
Quarter: 2013Q3

REPORT INFORMATION
  Report Type: Spontaneous
  Country: AT (occurrence: None)
  Receive Date: 20130805
  Receipt Date: 20130805
  Transmission Date: 20140515
  Serious: No
  Sender: FDA-Public Use
  Company Number: AT-2013-2350

PATIENT
  Age: 69 Year
  Sex: Male

DRUGS (3)
  1. VINORELBINE TARTRATE [Suspect]
     Indication: NON-SMALL CELL LUNG CANCER
  2. BEVACIZUMAB (BEVACIZUMAB) [Suspect]
     Indication: NON-SMALL CELL LUNG CANCER
  3. CISPLATIN (CISPLATIN) [Concomitant]
     Indication: NON-SMALL CELL LUNG CANCER

REACTIONS (2)
  - Aortic aneurysm [None]
  - Aortic arteriosclerosis [None]
